FAERS Safety Report 11338191 (Version 1)
Quarter: 2015Q3

REPORT INFORMATION
  Report Type: Spontaneous
  Country: US (occurrence: US)
  Receive Date: 20150803
  Receipt Date: 20150803
  Transmission Date: 20151125
  Serious: No
  Sender: FDA-Public Use
  Company Number: US-ELI_LILLY_AND_COMPANY-US201007006933

PATIENT
  Age: 29 Year
  Sex: Male

DRUGS (5)
  1. ZYPREXA [Suspect]
     Active Substance: OLANZAPINE
     Indication: SCHIZOPHRENIA
     Dosage: 10 MG, UNK
  2. ZYPREXA [Suspect]
     Active Substance: OLANZAPINE
     Dosage: 5 MG, UNK
     Dates: start: 20091022
  3. ABILIFY [Concomitant]
     Active Substance: ARIPIPRAZOLE
  4. ZYPREXA [Suspect]
     Active Substance: OLANZAPINE
     Dosage: 10 MG, UNK
  5. ZYPREXA [Suspect]
     Active Substance: OLANZAPINE
     Dosage: 7 MG, UNK

REACTIONS (3)
  - Weight increased [Unknown]
  - Movement disorder [Unknown]
  - Nervousness [Unknown]
